FAERS Safety Report 9536306 (Version 1)
Quarter: 2013Q3

REPORT INFORMATION
  Report Type: Spontaneous
  Country: US (occurrence: None)
  Receive Date: 20130917
  Receipt Date: 20130917
  Transmission Date: 20140515
  Serious: Yes (Disabling)
  Sender: FDA-Public Use
  Company Number: None

PATIENT
  Age: 63 Year
  Sex: Male
  Weight: 79.38 kg

DRUGS (5)
  1. NATURES GATE AQUA SPF 50 [Suspect]
     Dosage: ON THE SKIN
     Route: 061
     Dates: start: 200101, end: 20130823
  2. MAGNESIUM [Concomitant]
  3. ASPIRIN [Concomitant]
  4. ALTERNATING VITAMIN D [Concomitant]
  5. MULTI-VITAMINS [Concomitant]

REACTIONS (1)
  - Miliaria [None]
